FAERS Safety Report 8075267-1 (Version None)
Quarter: 2011Q4

REPORT INFORMATION
  Report Type: 
  Country: None (occurrence: None)
  Receive Date: 20111227
  Receipt Date: 20111108
  Transmission Date: 20120403
  Serious: No
  Sender: FDA-Public Use
  Company Number: PHEH2011US008892

PATIENT
  Sex: Male

DRUGS (1)
  1. GILENYA [Suspect]

REACTIONS (1)
  - NO ADVERSE EVENT [None]
